FAERS Safety Report 4378023-0 (Version None)
Quarter: 2004Q2

REPORT INFORMATION
  Report Type: 
  Country: None (occurrence: None)
  Receive Date: 20040616
  Receipt Date: 20040604
  Transmission Date: 20050107
  Serious: Yes (Hospitalization)
  Sender: FDA-Public Use
  Company Number: US-JNJFOC-20040603175

PATIENT
  Sex: Male

DRUGS (20)
  1. BLINDED; INFLIXIMAB, RECOMBINANT [Suspect]
     Route: 042
  2. BLINDED; INFLIXIMAB, RECOMBINANT [Suspect]
     Route: 042
  3. BLINDED; INFLIXIMAB, RECOMBINANT [Suspect]
     Route: 042
  4. PLACEBO [Suspect]
     Route: 042
  5. PLACEBO [Suspect]
     Route: 042
  6. PLACEBO [Suspect]
     Route: 042
  7. FORADIL [Concomitant]
     Route: 055
  8. COMBIVENT [Concomitant]
     Route: 055
  9. COMBIVENT [Concomitant]
     Route: 055
  10. SEREVENT [Concomitant]
     Route: 055
  11. PULMICORT [Concomitant]
     Route: 055
  12. FUROSEMIDE [Concomitant]
     Route: 049
  13. ETODOLAC [Concomitant]
     Route: 049
  14. ALPRAZOLAM [Concomitant]
     Route: 049
  15. HYDROCODONE [Concomitant]
     Route: 049
  16. MECLIZINE [Concomitant]
     Route: 049
  17. TRAZODONE HCL [Concomitant]
     Route: 049
  18. NAPROSYN [Concomitant]
     Route: 049
  19. BENADRYL [Concomitant]
     Route: 049
  20. TEQUIN [Concomitant]
     Route: 049

REACTIONS (1)
  - LUNG OPERATION [None]
